FAERS Safety Report 4686497-0 (Version None)
Quarter: 2005Q2

REPORT INFORMATION
  Report Type: 
  Country: None (occurrence: None)
  Receive Date: 20050606
  Receipt Date: 20050524
  Transmission Date: 20051028
  Serious: Yes (Death)
  Sender: FDA-Public Use
  Company Number: MK200505-0295-1

PATIENT
  Age: 41 Year
  Sex: Male
  Weight: 120.2032 kg

DRUGS (2)
  1. METHADOSE [Suspect]
     Indication: DEPENDENCE
     Dosage: 80 MG, Q D, PO
     Route: 048
     Dates: start: 20031201, end: 20050222
  2. ZOLOFT [Concomitant]
     Indication: DEPRESSION
     Dates: end: 20050222

REACTIONS (6)
  - ACCIDENTAL OVERDOSE [None]
  - CARDIOMEGALY [None]
  - CORONARY ARTERY ATHEROSCLEROSIS [None]
  - CORONARY ARTERY OCCLUSION [None]
  - DYSPNOEA [None]
  - HYPERTENSION [None]
